FAERS Safety Report 15337851 (Version 1)
Quarter: 2018Q3

REPORT INFORMATION
  Report Type: Report from Study
  Country: US (occurrence: US)
  Receive Date: 20180831
  Receipt Date: 20180831
  Transmission Date: 20181010
  Serious: No
  Sender: FDA-Public Use
  Company Number: PHEH2018US035112

PATIENT
  Sex: Female

DRUGS (2)
  1. COSENTYX [Suspect]
     Active Substance: SECUKINUMAB
     Indication: PSORIASIS
     Dosage: 150 MG, QW
     Route: 058
  2. PREDNISONE. [Concomitant]
     Active Substance: PREDNISONE
     Indication: PRODUCT USED FOR UNKNOWN INDICATION
     Route: 065

REACTIONS (8)
  - Psoriasis [Unknown]
  - Injection site pain [Unknown]
  - Back pain [Unknown]
  - Injection site extravasation [Unknown]
  - C-reactive protein increased [Unknown]
  - Arthralgia [Unknown]
  - Musculoskeletal pain [Unknown]
  - Red blood cell sedimentation rate increased [Unknown]
